FAERS Safety Report 16904788 (Version 1)
Quarter: 2019Q4

REPORT INFORMATION
  Report Type: Spontaneous
  Country: GB (occurrence: GB)
  Receive Date: 20191010
  Receipt Date: 20191010
  Transmission Date: 20200122
  Serious: Yes (Other)
  Sender: FDA-Public Use
  Company Number: GB-MYLANLABS-2019M1094818

PATIENT
  Age: 76 Year
  Sex: Female

DRUGS (6)
  1. BETAMETHASONE. [Concomitant]
     Active Substance: BETAMETHASONE
     Dosage: AS DIRECTED-SCALP APPLICATION
     Route: 061
     Dates: end: 20190130
  2. COLECALCIFEROL [Concomitant]
     Active Substance: CHOLECALCIFEROL
     Dosage: 400 INTERNATIONAL UNIT, QD
     Route: 048
  3. METFORMIN [Concomitant]
     Active Substance: METFORMIN HYDROCHLORIDE
     Dosage: 2000 MILLIGRAM, QD
     Route: 048
  4. BENDROFLUMETHIAZIDE [Concomitant]
     Active Substance: BENDROFLUMETHIAZIDE
     Dosage: 2.5 MILLIGRAM, QD, IN MORNING
     Route: 048
  5. BETTAMOUSSE [Concomitant]
     Dosage: 3 DOSAGE FORM, QD-FOAM
     Route: 061
     Dates: start: 20181205
  6. DOXYCYCLINE. [Suspect]
     Active Substance: DOXYCYCLINE
     Indication: PRODUCT USED FOR UNKNOWN INDICATION
     Dosage: UNK
     Route: 048
     Dates: start: 201812

REACTIONS (1)
  - Cognitive disorder [Recovered/Resolved]
